FAERS Safety Report 25873195 (Version 2)
Quarter: 2025Q4

REPORT INFORMATION
  Report Type: Spontaneous
  Country: US (occurrence: US)
  Receive Date: 20251002
  Receipt Date: 20251024
  Transmission Date: 20260117
  Serious: Yes (Other)
  Sender: PFIZER
  Company Number: US-PFIZER INC-202500183187

PATIENT
  Age: 47 Year
  Sex: Female
  Weight: 65.77 kg

DRUGS (1)
  1. ELELYSO [Suspect]
     Active Substance: TALIGLUCERASE ALFA
     Indication: Gaucher^s disease
     Dosage: 4000 IU (EVERY 14 DAYS)
     Route: 042

REACTIONS (1)
  - Lymphoma [Unknown]
